FAERS Safety Report 10244743 (Version 1)
Quarter: 2014Q2

REPORT INFORMATION
  Report Type: Spontaneous
  Country: GB (occurrence: GB)
  Receive Date: 20140618
  Receipt Date: 20140618
  Transmission Date: 20141212
  Serious: Yes (Other)
  Sender: FDA-Public Use
  Company Number: GB-BRISTOL-MYERS SQUIBB COMPANY-20819876

PATIENT
  Sex: 0

DRUGS (1)
  1. ERBITUX [Suspect]

REACTIONS (1)
  - Encephalopathy [Unknown]
